FAERS Safety Report 16706960 (Version 2)
Quarter: 2019Q3

REPORT INFORMATION
  Report Type: Spontaneous
  Country: CN (occurrence: CN)
  Receive Date: 20190815
  Receipt Date: 20190820
  Transmission Date: 20191004
  Serious: Yes (Death, Other)
  Sender: FDA-Public Use
  Company Number: CN-PFIZER INC-2019347855

PATIENT
  Age: 77 Year
  Sex: Male

DRUGS (7)
  1. MEROPENEM. [Concomitant]
     Active Substance: MEROPENEM
     Dosage: 0.5 G, 3X/DAY
     Route: 041
     Dates: end: 20180328
  2. TIGECYCLINE. [Suspect]
     Active Substance: TIGECYCLINE
     Indication: CHRONIC OBSTRUCTIVE PULMONARY DISEASE
     Dosage: 100 MG, UNK
     Route: 041
     Dates: start: 20180320, end: 20180321
  3. AMIKACIN. [Concomitant]
     Active Substance: AMIKACIN
     Dosage: 200 MG, 2X/DAY
     Route: 041
     Dates: end: 20180327
  4. MINOCYCLINE [Concomitant]
     Active Substance: MINOCYCLINE HYDROCHLORIDE
     Dosage: 0.1 G, 2X/DAY
     Route: 041
     Dates: end: 20180327
  5. MINOCYCLINE [Concomitant]
     Active Substance: MINOCYCLINE HYDROCHLORIDE
     Dosage: 0.1 G, 2X/DAY
     Route: 048
  6. MEROPENEM. [Concomitant]
     Active Substance: MEROPENEM
     Dosage: 0.5 G, 3X/DAY
     Route: 041
     Dates: end: 20180320
  7. TIGECYCLINE. [Suspect]
     Active Substance: TIGECYCLINE
     Dosage: 50 MG, 2X/DAY
     Route: 042
     Dates: start: 20190327, end: 20190327

REACTIONS (4)
  - Hallucination [Recovering/Resolving]
  - Staring [Recovered/Resolved]
  - Disorganised speech [Recovering/Resolving]
  - Unresponsive to stimuli [Recovered/Resolved]
